FAERS Safety Report 23757551 (Version 1)
Quarter: 2024Q2

REPORT INFORMATION
  Report Type: Spontaneous
  Country: US (occurrence: US)
  Receive Date: 20240418
  Receipt Date: 20240418
  Transmission Date: 20240716
  Serious: Yes (Other)
  Sender: FDA-Public Use
  Company Number: US-PFIZER INC-PV202400050326

PATIENT
  Age: 68 Year
  Sex: Female

DRUGS (4)
  1. PAXLOVID [Interacting]
     Active Substance: NIRMATRELVIR\RITONAVIR
     Indication: COVID-19 treatment
     Dosage: UNK
  2. OFEV [Interacting]
     Active Substance: NINTEDANIB
     Indication: Pulmonary fibrosis
     Dosage: 150 MG, 2X/DAY
     Route: 048
     Dates: start: 20230110, end: 20230115
  3. OFEV [Interacting]
     Active Substance: NINTEDANIB
     Indication: Idiopathic pulmonary fibrosis
     Dosage: 100 MG, 2X/DAY
     Route: 048
     Dates: start: 202404
  4. OFEV [Interacting]
     Active Substance: NINTEDANIB
     Dosage: 150 MG, DAILY
     Route: 048

REACTIONS (4)
  - Drug interaction [Unknown]
  - Diarrhoea [Recovered/Resolved]
  - Muscle strain [Not Recovered/Not Resolved]
  - Fatigue [Unknown]
